FAERS Safety Report 11664693 (Version 1)
Quarter: 2015Q4

REPORT INFORMATION
  Report Type: Other
  Country: US (occurrence: US)
  Receive Date: 20151027
  Receipt Date: 20151027
  Transmission Date: 20160304
  Serious: Yes (Hospitalization, Other)
  Sender: FDA-Public Use
  Company Number: US-ACORDA-ACO_107579_2014

PATIENT
  Age: 36 Year
  Sex: Male

DRUGS (2)
  1. AMPYRA [Suspect]
     Active Substance: DALFAMPRIDINE
     Dosage: 10 MG, BID
     Route: 048
     Dates: start: 20130809
  2. AMPYRA [Suspect]
     Active Substance: DALFAMPRIDINE
     Indication: GAIT DISTURBANCE
     Dosage: 10 MG, BID
     Route: 048

REACTIONS (9)
  - Nephrolithiasis [Unknown]
  - Nephrolithiasis [Unknown]
  - Urinary tract infection [Unknown]
  - Urinary tract infection [Unknown]
  - Therapy cessation [Unknown]
  - Seizure [Unknown]
  - Respiration abnormal [Unknown]
  - Hyperventilation [Unknown]
  - Renal failure [Unknown]

NARRATIVE: CASE EVENT DATE: 201410
